FAERS Safety Report 7132441-6 (Version None)
Quarter: 2010Q4

REPORT INFORMATION
  Report Type: 
  Country: None (occurrence: None)
  Receive Date: 20101202
  Receipt Date: 20101124
  Transmission Date: 20110411
  Serious: Yes (Death, Hospitalization)
  Sender: FDA-Public Use
  Company Number: MX-SANOFI-AVENTIS-2010SA071584

PATIENT
  Age: 55 Year
  Sex: Female

DRUGS (1)
  1. AMARYL [Suspect]
     Indication: TYPE 2 DIABETES MELLITUS
     Route: 048
     Dates: start: 20070101, end: 20100101

REACTIONS (3)
  - CARDIAC ARREST [None]
  - DIABETIC FOOT [None]
  - NEOPLASM MALIGNANT [None]
